FAERS Safety Report 5916322-9 (Version None)
Quarter: 2008Q4

REPORT INFORMATION
  Report Type: 
  Country: None (occurrence: None)
  Receive Date: 20081013
  Receipt Date: 20081008
  Transmission Date: 20090506
  Serious: Yes (Life-Threatening, Hospitalization, Disabling)
  Sender: FDA-Public Use
  Company Number: PHHY2008DE23759

PATIENT
  Age: 38 Year
  Sex: Male

DRUGS (9)
  1. TEGRETOL [Suspect]
     Dosage: 400 MG, QD
     Dates: start: 20061021, end: 20061022
  2. SOLIAN [Interacting]
     Dosage: 600 MG/DAY
     Dates: start: 20061009, end: 20061020
  3. SOLIAN [Interacting]
     Dosage: 800 MG/DAY
     Dates: start: 20061021, end: 20061022
  4. LORAZEPAM [Interacting]
     Dosage: 2 MG/DAY
     Route: 042
     Dates: start: 20061022, end: 20061022
  5. LORAZEPAM [Interacting]
     Dosage: 5 MG AS PER REAL NEED
  6. ERGENYL CHRONO [Interacting]
     Dosage: 600 MG/DAY
     Dates: start: 20061011, end: 20061022
  7. EUNERPAN [Interacting]
     Dosage: 75 MG/DAY
     Dates: end: 20061022
  8. HALDOL [Interacting]
     Dosage: 5 MG/DAY
  9. LEPONEX [Concomitant]
     Dosage: 300 MG/DAY
     Dates: end: 20061008

REACTIONS (8)
  - CARDIAC ARREST [None]
  - CARDIAC FAILURE ACUTE [None]
  - DRUG INTERACTION [None]
  - DYSPHAGIA [None]
  - ELECTROLYTE IMBALANCE [None]
  - ENURESIS [None]
  - HYPERVENTILATION [None]
  - SHOCK [None]
